FAERS Safety Report 8579047-X (Version None)
Quarter: 2012Q3

REPORT INFORMATION
  Report Type: 
  Country: None (occurrence: None)
  Receive Date: 20120726
  Receipt Date: 20120713
  Transmission Date: 20120928
  Serious: Yes (Hospitalization)
  Sender: FDA-Public Use
  Company Number: NSR_00591_2012

PATIENT
  Age: 89 Year
  Sex: Female

DRUGS (1)
  1. ALLOPURINOL [Suspect]
     Indication: PRODUCT USED FOR UNKNOWN INDICATION
     Dosage: (DF)

REACTIONS (4)
  - RASH [None]
  - MOUTH ULCERATION [None]
  - AUTOIMMUNE THROMBOCYTOPENIA [None]
  - ODYNOPHAGIA [None]
